FAERS Safety Report 7927853-4 (Version None)
Quarter: 2011Q4

REPORT INFORMATION
  Report Type: 
  Country: None (occurrence: None)
  Receive Date: 20111118
  Receipt Date: 20111118
  Transmission Date: 20120403
  Serious: No
  Sender: FDA-Public Use
  Company Number: None

PATIENT
  Age: 51 Year
  Sex: Male
  Weight: 126 kg

DRUGS (2)
  1. ERBITUX [Concomitant]
  2. ERBITUX [Suspect]
     Indication: TONSIL CANCER
     Dosage: 880MG
     Route: 041
     Dates: start: 20111115, end: 20111115

REACTIONS (6)
  - MUSCULOSKELETAL STIFFNESS [None]
  - LOSS OF CONSCIOUSNESS [None]
  - HYPOTENSION [None]
  - ANAPHYLACTIC REACTION [None]
  - INCONTINENCE [None]
  - CHEYNE-STOKES RESPIRATION [None]
